FAERS Safety Report 11052048 (Version 1)
Quarter: 2015Q2

REPORT INFORMATION
  Report Type: Spontaneous
  Country: US (occurrence: US)
  Receive Date: 20150421
  Receipt Date: 20150421
  Transmission Date: 20150821
  Serious: No
  Sender: FDA-Public Use
  Company Number: US-009507513-1504USA017501

PATIENT
  Age: 43 Year
  Sex: Male
  Weight: 91 kg

DRUGS (1)
  1. COPPERTONE [Suspect]
     Active Substance: OCTINOXATE\OCTOCRYLENE
     Indication: PRODUCT USED FOR UNKNOWN INDICATION
     Dosage: 1 DOSE, PRN
     Route: 061
     Dates: start: 20150409, end: 20150409

REACTIONS (1)
  - Drug ineffective [Unknown]

NARRATIVE: CASE EVENT DATE: 20150409
